FAERS Safety Report 8084289 (Version 3)
Quarter: 2013Q3

REPORT INFORMATION
  Report Type: Spontaneous
  Country: US (occurrence: US)
  Receive Date: 20110810
  Receipt Date: 20130814
  Transmission Date: 20140515
  Serious: Yes (Hospitalization)
  Sender: FDA-Public Use
  Company Number: US-GLAXOSMITHKLINE-A0903061A

PATIENT
  Age: 50 Year
  Sex: Male
  Weight: 82.7 kg

DRUGS (1)
  1. AVANDIA [Suspect]
     Indication: DIABETES MELLITUS
     Dosage: 8MG PER DAY
     Route: 048
     Dates: start: 20030926, end: 20080425

REACTIONS (4)
  - Atrial fibrillation [Unknown]
  - Cardiac failure congestive [Unknown]
  - Diastolic dysfunction [Unknown]
  - Cardiovascular disorder [Unknown]
